FAERS Safety Report 20464075 (Version 1)
Quarter: 2022Q1

REPORT INFORMATION
  Report Type: Spontaneous
  Country: US (occurrence: US)
  Receive Date: 20220211
  Receipt Date: 20220211
  Transmission Date: 20220424
  Serious: Yes (Other)
  Sender: FDA-Public Use
  Company Number: US-NOVARTISPH-NVSC2022US031022

PATIENT
  Age: 62 Year
  Sex: Male

DRUGS (2)
  1. RANITIDINE [Suspect]
     Active Substance: RANITIDINE
     Indication: Nausea
     Dosage: UNKNOWN AT THIS TIME,,DAILY,WEEKLY/OCCASIONAL/PERIODS OF NON-USE
     Route: 048
     Dates: start: 198901, end: 201912
  2. RANITIDINE [Suspect]
     Active Substance: RANITIDINE
     Indication: Nausea
     Dosage: UNKNOWN AT THIS TIME,,DAILY,WEEKLY/OCCASIONAL/PERIODS OF NON-USE
     Route: 048
     Dates: start: 198901, end: 201912

REACTIONS (3)
  - Bladder cancer [Unknown]
  - Oesophageal carcinoma [Unknown]
  - Incorrect dose administered [Unknown]

NARRATIVE: CASE EVENT DATE: 20180801
